FAERS Safety Report 4317287-6 (Version None)
Quarter: 2004Q1

REPORT INFORMATION
  Report Type: 
  Country: None (occurrence: None)
  Receive Date: 20040312
  Receipt Date: 20040227
  Transmission Date: 20041129
  Serious: Yes (Hospitalization)
  Sender: FDA-Public Use
  Company Number: 2004014360

PATIENT
  Age: 76 Year
  Sex: Female

DRUGS (2)
  1. AMLODIPINE [Suspect]
     Indication: HYPERTENSION
     Dosage: ORAL
     Route: 048
     Dates: end: 20040225
  2. VALSARTAN (VALSARTAN) [Suspect]
     Indication: HYPERTENSION
     Dosage: 80 MG (DAILY), ORAL
     Route: 048

REACTIONS (6)
  - BUNDLE BRANCH BLOCK RIGHT [None]
  - DEPRESSED LEVEL OF CONSCIOUSNESS [None]
  - EXTRASYSTOLES [None]
  - SICK SINUS SYNDROME [None]
  - SINOATRIAL BLOCK [None]
  - TREATMENT NONCOMPLIANCE [None]
